FAERS Safety Report 8334538-1 (Version None)
Quarter: 2012Q2

REPORT INFORMATION
  Report Type: 
  Country: None (occurrence: None)
  Receive Date: 20120503
  Receipt Date: 20120423
  Transmission Date: 20120825
  Serious: Yes (Other)
  Sender: FDA-Public Use
  Company Number: US-BRISTOL-MYERS SQUIBB COMPANY-16542201

PATIENT
  Age: 69 Year
  Sex: Male

DRUGS (2)
  1. COUMADIN [Suspect]
     Dates: start: 20040101
  2. PLAVIX [Suspect]

REACTIONS (3)
  - STENT PLACEMENT [None]
  - CEREBROVASCULAR ACCIDENT [None]
  - SPEECH DISORDER [None]
